FAERS Safety Report 7376355-5 (Version None)
Quarter: 2011Q1

REPORT INFORMATION
  Report Type: 
  Country: None (occurrence: None)
  Receive Date: 20110325
  Receipt Date: 20110323
  Transmission Date: 20110831
  Serious: Yes (Disabling, Other)
  Sender: FDA-Public Use
  Company Number: US-PFIZER INC-2010168454

PATIENT
  Sex: Male
  Weight: 75.737 kg

DRUGS (7)
  1. LIPITOR [Suspect]
     Indication: CARDIAC DISORDER
     Dosage: 80 MG, 1X/DAY
     Route: 048
     Dates: start: 20100101, end: 20101202
  2. ACETYLSALICYLIC ACID [Concomitant]
     Indication: CARDIAC DISORDER
     Dosage: 325 MG, 1X/DAY
     Route: 048
  3. LEXAPRO [Concomitant]
     Indication: DEPRESSION
     Dosage: 20 MG, 1X/DAY
     Route: 048
     Dates: start: 20100401
  4. LIPITOR [Suspect]
     Indication: BLOOD CHOLESTEROL INCREASED
  5. RAMIPRIL [Concomitant]
     Indication: CARDIAC DISORDER
     Dosage: 2.5 MG, UNK
     Route: 048
  6. LEVOTHROID [Concomitant]
     Indication: THYROID DISORDER
     Dosage: 0.1 MG, UNK
     Route: 048
  7. METOPROLOL [Concomitant]
     Indication: CARDIAC DISORDER
     Dosage: 25 MG, UNK
     Route: 048

REACTIONS (4)
  - PAIN IN EXTREMITY [None]
  - GAIT DISTURBANCE [None]
  - ASTHENIA [None]
  - MYALGIA [None]
